FAERS Safety Report 21546048 (Version 1)
Quarter: 2022Q4

REPORT INFORMATION
  Report Type: Spontaneous
  Country: GB (occurrence: GB)
  Receive Date: 20221103
  Receipt Date: 20221103
  Transmission Date: 20230113
  Serious: Yes (Disabling, Other)
  Sender: FDA-Public Use
  Company Number: GB-MHRA-MED-202210230232337320-TNJQH

PATIENT
  Age: 37 Year
  Sex: Female
  Weight: 67 kg

DRUGS (2)
  1. NEXPLANON [Suspect]
     Active Substance: ETONOGESTREL
     Dosage: UNK
     Dates: start: 2019, end: 20220923
  2. BECLOMETHASONE\FORMOTEROL [Concomitant]
     Active Substance: BECLOMETHASONE\FORMOTEROL
     Dosage: UNK

REACTIONS (9)
  - Hyperhidrosis [Recovered/Resolved]
  - Exfoliative rash [Not Recovered/Not Resolved]
  - Urticaria [Recovering/Resolving]
  - Erythema [Recovering/Resolving]
  - Skin erosion [Recovering/Resolving]
  - Temperature intolerance [Not Recovered/Not Resolved]
  - Nausea [Recovered/Resolved]
  - Pruritus [Recovering/Resolving]
  - Night sweats [Recovered/Resolved]
